FAERS Safety Report 21803909 (Version 1)
Quarter: 2023Q1

REPORT INFORMATION
  Report Type: Spontaneous
  Country: US (occurrence: US)
  Receive Date: 20230102
  Receipt Date: 20230102
  Transmission Date: 20230417
  Serious: Yes (Hospitalization, Other)
  Sender: FDA-Public Use
  Company Number: US-BIOVITRUM-2022US15933

PATIENT
  Age: 1 Year
  Sex: Female

DRUGS (2)
  1. SYNAGIS [Suspect]
     Active Substance: PALIVIZUMAB
     Indication: Premature baby
     Dosage: 100MG/ML
     Dates: start: 202203
  2. SYNAGIS [Suspect]
     Active Substance: PALIVIZUMAB
     Dosage: 50MG/0.5ML
     Dates: start: 202209

REACTIONS (1)
  - Bronchiolitis [Unknown]

NARRATIVE: CASE EVENT DATE: 20221210
